FAERS Safety Report 10007894 (Version 2)
Quarter: 2014Q1

REPORT INFORMATION
  Report Type: Spontaneous
  Country: US (occurrence: US)
  Receive Date: 20140313
  Receipt Date: 20140313
  Transmission Date: 20141002
  Serious: No
  Sender: FDA-Public Use
  Company Number: US-GILEAD-2013-0070583

PATIENT
  Sex: Male

DRUGS (3)
  1. LETAIRIS [Suspect]
     Indication: PULMONARY ARTERIAL HYPERTENSION
     Dosage: 10 MG, QD
     Dates: start: 20120503
  2. LETAIRIS [Suspect]
     Dosage: 10 MG, QD
  3. SILDENAFIL [Concomitant]

REACTIONS (6)
  - Pulmonary arterial hypertension [Unknown]
  - Blood glucose decreased [Unknown]
  - Weight decreased [Unknown]
  - Drug dose omission [Unknown]
  - Fatigue [Unknown]
  - Dyspnoea [Not Recovered/Not Resolved]
